FAERS Safety Report 12083468 (Version 3)
Quarter: 2016Q3

REPORT INFORMATION
  Report Type: Spontaneous
  Country: FR (occurrence: FR)
  Receive Date: 20160217
  Receipt Date: 20160810
  Transmission Date: 20161109
  Serious: Yes (Hospitalization)
  Sender: FDA-Public Use
  Company Number: FR-ASTRAZENECA-2016SE15679

PATIENT
  Age: 1033 Month
  Sex: Male
  Weight: 59 kg

DRUGS (16)
  1. CALCIDIA [Concomitant]
     Active Substance: CALCIUM POLYCARBOPHIL
     Route: 048
     Dates: start: 20151029
  2. NOVORAPID [Concomitant]
     Active Substance: INSULIN ASPART
     Route: 058
     Dates: start: 20151116
  3. INEXIUM [Suspect]
     Active Substance: ESOMEPRAZOLE
     Route: 048
     Dates: start: 20151029, end: 20160117
  4. MIANSERINE [Suspect]
     Active Substance: MIANSERIN HYDROCHLORIDE
     Dosage: 1.0DF UNKNOWN
     Route: 065
     Dates: start: 20160115
  5. TAHOR [Suspect]
     Active Substance: ATORVASTATIN CALCIUM
     Route: 048
     Dates: start: 20151029, end: 20160117
  6. DIFFU K [Concomitant]
     Active Substance: POTASSIUM CHLORIDE
     Route: 048
     Dates: start: 20151029, end: 20160119
  7. KARDEGIC [Concomitant]
     Active Substance: ASPIRIN LYSINE
     Route: 048
     Dates: start: 20151029
  8. LASILIX SPECIAL [Concomitant]
     Active Substance: FUROSEMIDE
     Route: 048
     Dates: start: 20151116, end: 20160126
  9. RENVELA [Concomitant]
     Active Substance: SEVELAMER CARBONATE
     Route: 048
     Dates: start: 20151029, end: 20160126
  10. MOVICOL [Concomitant]
     Active Substance: POLYETHYLENE GLYCOL 3350\POTASSIUM CHLORIDE\SODIUM BICARBONATE\SODIUM CHLORIDE
     Route: 048
     Dates: start: 20151029
  11. CORDARONE [Suspect]
     Active Substance: AMIODARONE HYDROCHLORIDE
     Route: 048
     Dates: start: 20151029, end: 20160117
  12. UVEDOSE [Concomitant]
     Active Substance: CHOLECALCIFEROL
     Route: 048
  13. AMLOR [Concomitant]
     Active Substance: AMLODIPINE BESYLATE
     Route: 048
     Dates: start: 20151029
  14. DIAMOX SEQUELS [Concomitant]
     Active Substance: ACETAZOLAMIDE
     Route: 048
     Dates: start: 20151116, end: 20160119
  15. NOVOMIX FLEXPEN [Concomitant]
     Active Substance: INSULIN ASPART
     Route: 058
     Dates: start: 20151116
  16. NOVOMIX FLEXPEN [Concomitant]
     Active Substance: INSULIN ASPART
     Route: 058
     Dates: start: 20151116

REACTIONS (2)
  - Cholestasis [Recovered/Resolved]
  - Hepatocellular injury [Recovered/Resolved]

NARRATIVE: CASE EVENT DATE: 201601
